FAERS Safety Report 9943392 (Version 1)
Quarter: 2014Q1

REPORT INFORMATION
  Report Type: Spontaneous
  Country: US (occurrence: US)
  Receive Date: 20140303
  Receipt Date: 20140303
  Transmission Date: 20141002
  Serious: No
  Sender: FDA-Public Use
  Company Number: US-ABBVIE-13P-163-1046987-00

PATIENT
  Age: 52 Year
  Sex: Female
  Weight: 127.12 kg

DRUGS (3)
  1. HUMIRA [Suspect]
     Indication: PSORIATIC ARTHROPATHY
     Dates: start: 201207
  2. HUMIRA [Suspect]
     Indication: PSORIASIS
  3. SYNTHROID [Concomitant]
     Indication: PRODUCT USED FOR UNKNOWN INDICATION

REACTIONS (3)
  - Arthralgia [Not Recovered/Not Resolved]
  - Device malfunction [Unknown]
  - Drug dose omission [Unknown]
